FAERS Safety Report 12978190 (Version 1)
Quarter: 2016Q4

REPORT INFORMATION
  Report Type: Spontaneous
  Country: US (occurrence: US)
  Receive Date: 20161126
  Receipt Date: 20161126
  Transmission Date: 20170207
  Serious: No
  Sender: FDA-Public Use
  Company Number: None

PATIENT
  Age: 27 Year
  Sex: Male
  Weight: 90 kg

DRUGS (2)
  1. NAPROXEN. [Suspect]
     Active Substance: NAPROXEN
     Indication: ARTHROPATHY
     Dosage: ?          QUANTITY:1 TABLET(S);?
     Route: 048
     Dates: start: 20161120, end: 20161126
  2. CLARITIN [Concomitant]
     Active Substance: LORATADINE

REACTIONS (5)
  - Rash [None]
  - Headache [None]
  - Back pain [None]
  - Dyspnoea [None]
  - Abdominal pain upper [None]

NARRATIVE: CASE EVENT DATE: 20161123
